FAERS Safety Report 6079339-2 (Version None)
Quarter: 2009Q1

REPORT INFORMATION
  Report Type: 
  Country: None (occurrence: None)
  Receive Date: 20090216
  Receipt Date: 20090211
  Transmission Date: 20090719
  Serious: Yes (Other)
  Sender: FDA-Public Use
  Company Number: PHHO2008GB11123

PATIENT
  Sex: Male
  Weight: 67 kg

DRUGS (5)
  1. ZOLEDRONIC ACID [Suspect]
     Indication: METASTASES TO BONE
     Dosage: 4 MG,
     Route: 042
     Dates: start: 20070815
  2. CELECOXIB [Concomitant]
     Dosage: 40 MG, UNK
     Route: 048
     Dates: start: 20070815
  3. HORMONES [Concomitant]
     Dosage: UNK
     Route: 058
     Dates: start: 20070410
  4. VITAMIN D [Concomitant]
  5. CALCIUM [Concomitant]

REACTIONS (8)
  - GINGIVAL INFECTION [None]
  - IMPAIRED HEALING [None]
  - OSTEONECROSIS [None]
  - PAIN [None]
  - PERIODONTAL DISEASE [None]
  - PRIMARY SEQUESTRUM [None]
  - TOOTH EXTRACTION [None]
  - TOOTH INJURY [None]
